FAERS Safety Report 15569137 (Version 1)
Quarter: 2018Q4

REPORT INFORMATION
  Report Type: Spontaneous
  Country: US (occurrence: US)
  Receive Date: 20181031
  Receipt Date: 20181031
  Transmission Date: 20190205
  Serious: No
  Sender: FDA-Public Use
  Company Number: US-BIO PRODUCTS LABORATORY LTD-2058254

PATIENT
  Age: 55 Year
  Sex: Male

DRUGS (1)
  1. GAMMAPLEX [Suspect]
     Active Substance: HUMAN IMMUNOGLOBULIN G
     Indication: MULTIPLE SYSTEM ATROPHY
     Route: 042
     Dates: start: 20160701, end: 20161201

REACTIONS (2)
  - Off label use [Unknown]
  - Therapeutic response unexpected [Unknown]
